FAERS Safety Report 4352831-4 (Version None)
Quarter: 2004Q2

REPORT INFORMATION
  Report Type: 
  Country: None (occurrence: None)
  Receive Date: 20040504
  Receipt Date: 20040426
  Transmission Date: 20050107
  Serious: Yes (Other)
  Sender: FDA-Public Use
  Company Number: PHEH2004US04695

PATIENT
  Sex: Female

DRUGS (2)
  1. TRILEPTAL [Suspect]
     Dosage: 600/300 / BID
     Route: 048
  2. PHENOBARBITAL TAB [Concomitant]

REACTIONS (3)
  - ANOXIC ENCEPHALOPATHY [None]
  - MYOCLONUS [None]
  - RESPIRATORY ARREST [None]
